FAERS Safety Report 14969483 (Version 1)
Quarter: 2018Q2

REPORT INFORMATION
  Report Type: Report from Study
  Country: US (occurrence: US)
  Receive Date: 20180604
  Receipt Date: 20180604
  Transmission Date: 20180711
  Serious: Yes (Other)
  Sender: FDA-Public Use
  Company Number: US-TESARO, INC-US-2018TSO02139

PATIENT

DRUGS (2)
  1. ZEJULA [Suspect]
     Active Substance: NIRAPARIB
     Dosage: 200 MG, QD
     Route: 048
     Dates: end: 20180515
  2. ZEJULA [Suspect]
     Active Substance: NIRAPARIB
     Indication: OVARIAN CANCER
     Dosage: 200 MG, QD
     Route: 048
     Dates: start: 20180402

REACTIONS (8)
  - Asthenia [Recovered/Resolved]
  - Dizziness [Not Recovered/Not Resolved]
  - Carbohydrate antigen 125 increased [Not Recovered/Not Resolved]
  - Drug ineffective [Recovered/Resolved]
  - Headache [Not Recovered/Not Resolved]
  - Disease progression [Not Recovered/Not Resolved]
  - Intentional underdose [Not Recovered/Not Resolved]
  - Insomnia [Recovered/Resolved]
